FAERS Safety Report 7903642-1 (Version None)
Quarter: 2011Q4

REPORT INFORMATION
  Report Type: 
  Country: None (occurrence: None)
  Receive Date: 20111109
  Receipt Date: 20111031
  Transmission Date: 20120403
  Serious: Yes (Hospitalization)
  Sender: FDA-Public Use
  Company Number: NP-ELI_LILLY_AND_COMPANY-NP201109002492

PATIENT
  Age: 61 Year
  Sex: Male

DRUGS (25)
  1. LACTULOSE [Concomitant]
     Indication: CONSTIPATION
     Dosage: 30 ML, PRN
     Route: 048
  2. ASTAT [Concomitant]
     Dosage: 10 MG, UNKNOWN
     Route: 048
  3. CHLORZOXAZONE [Concomitant]
     Dosage: 1 DF, TID
     Route: 048
  4. CISPLATIN [Concomitant]
     Dosage: UNK
  5. TANTUM [Concomitant]
     Dosage: UNK UNK, QID
  6. AMLODIPINE [Concomitant]
     Dosage: 5 MG, UNKNOWN
     Route: 048
  7. NOVOMIX                            /01475801/ [Concomitant]
     Dosage: UNK UNK, QD
  8. ACECLOFENAC [Concomitant]
     Dosage: 100 MG, BID
     Route: 048
  9. PROXYVON [Concomitant]
     Dosage: 1 DF, QID
     Route: 048
  10. BECOSULES CAPSULE [Concomitant]
     Dosage: UNK UNK, QD
     Route: 048
  11. GLYCIPHAGE [Concomitant]
     Dosage: 850 MG, BID
     Route: 048
  12. VALIUM [Concomitant]
     Dosage: 5 MG, UNKNOWN
     Route: 048
  13. NEUROBION FOR INJECTION [Concomitant]
     Dosage: 1 DF, EVERY 3 WEEKS
     Route: 030
  14. ONDANSETRON [Concomitant]
     Dosage: 8 MG, TID
     Route: 048
  15. ATENOLOL [Concomitant]
     Dosage: 25 MG, QD
     Route: 048
  16. ALIMTA [Suspect]
     Indication: PLEURAL MESOTHELIOMA MALIGNANT
     Dosage: 700 MG, DAY 1 EVERY 3 WEEKS
     Route: 042
  17. FOLIC ACID [Concomitant]
     Dosage: 5 MG, QD
     Route: 048
  18. DOMSTAL [Concomitant]
     Dosage: 10 MG, QID
     Route: 048
  19. COVANCE [Concomitant]
     Dosage: 1 UNK, UNK
     Route: 048
  20. TAMSULOSIN HCL [Concomitant]
     Dosage: 0.4 MG, UNKNOWN
     Route: 048
  21. DEXAMETHASONE SODIUM PHOSPHATE [Concomitant]
     Dosage: 4 MG, TID
  22. CLOPID [Concomitant]
     Dosage: 75 MG, QD
     Route: 048
  23. CODEINE PHOSPHATE [Concomitant]
     Dosage: 1 DF, QID
     Route: 048
  24. CISPLATIN [Concomitant]
     Dosage: 60 MG, DAY ONE AND DAY TWO EVERY 3 WEEKS
     Route: 042
  25. GLIMEPIRIDE [Concomitant]
     Dosage: 2 MG, BID
     Route: 048

REACTIONS (3)
  - CHEST PAIN [None]
  - COUGH [None]
  - INSOMNIA [None]
